FAERS Safety Report 13575801 (Version 2)
Quarter: 2018Q1

REPORT INFORMATION
  Report Type: Report from Study
  Country: BR (occurrence: BR)
  Receive Date: 20170524
  Receipt Date: 20180216
  Transmission Date: 20180508
  Serious: Yes (Death, Hospitalization)
  Sender: FDA-Public Use
  Company Number: BR-UCBSA-2017019495

PATIENT
  Age: 73 Year
  Sex: Male

DRUGS (3)
  1. PROLOPA [Concomitant]
     Active Substance: BENSERAZIDE\LEVODOPA
     Indication: PRODUCT USED FOR UNKNOWN INDICATION
  2. ROTIGOTINE [Suspect]
     Active Substance: ROTIGOTINE
     Dosage: 6 MG, ONCE DAILY (QD)
     Route: 062
     Dates: start: 20170703, end: 201707
  3. ROTIGOTINE [Suspect]
     Active Substance: ROTIGOTINE
     Indication: PARKINSON^S DISEASE
     Dosage: 6 MG, ONCE DAILY (QD)
     Route: 062
     Dates: start: 201511

REACTIONS (7)
  - Parkinson^s disease [Not Recovered/Not Resolved]
  - Haematemesis [Unknown]
  - Dysuria [Unknown]
  - Prostatic disorder [Unknown]
  - Urinary tract infection [Unknown]
  - Respiratory arrest [Fatal]
  - Dyspepsia [Unknown]

NARRATIVE: CASE EVENT DATE: 20170515
